FAERS Safety Report 8242822-5 (Version None)
Quarter: 2012Q1

REPORT INFORMATION
  Report Type: 
  Country: None (occurrence: None)
  Receive Date: 20120329
  Receipt Date: 20120315
  Transmission Date: 20120608
  Serious: Yes (Other)
  Sender: FDA-Public Use
  Company Number: DE-MYLANLABS-2012S1005732

PATIENT
  Age: 80 Year
  Sex: Female

DRUGS (25)
  1. LISINOPRIL [Concomitant]
     Indication: PRODUCT USED FOR UNKNOWN INDICATION
     Route: 048
     Dates: start: 20110722, end: 20110810
  2. QUETIAPINE [Suspect]
     Route: 048
     Dates: start: 20110826, end: 20110829
  3. LITHIUM CARBONATE [Suspect]
     Indication: PRODUCT USED FOR UNKNOWN INDICATION
     Dosage: SCHON LANGER
     Route: 048
     Dates: end: 20110725
  4. AGOMELATIN [Suspect]
     Indication: PRODUCT USED FOR UNKNOWN INDICATION
     Route: 048
     Dates: start: 20110811, end: 20110817
  5. PHENPRO [Concomitant]
     Indication: PRODUCT USED FOR UNKNOWN INDICATION
     Route: 048
     Dates: start: 20110722, end: 20111012
  6. HALOPERIDOL [Suspect]
     Indication: PRODUCT USED FOR UNKNOWN INDICATION
     Route: 048
     Dates: start: 20110906, end: 20110912
  7. QUETIAPINE [Suspect]
     Route: 048
     Dates: start: 20110906, end: 20110911
  8. LISINOPRIL [Concomitant]
     Route: 048
     Dates: start: 20110811, end: 20110826
  9. HALOPERIDOL [Suspect]
     Route: 048
     Dates: start: 20110913, end: 20110914
  10. LITHIUM CARBONATE [Suspect]
     Route: 048
     Dates: start: 20110922
  11. DOMINAL [Suspect]
     Route: 048
     Dates: start: 20110826, end: 20110904
  12. DOMINAL [Suspect]
     Route: 048
     Dates: start: 20110905, end: 20110914
  13. POLYETHYLENE GLYCOL [Concomitant]
     Indication: PRODUCT USED FOR UNKNOWN INDICATION
     Dosage: SCHON LANGER 1 BTL.
  14. LISINOPRIL [Concomitant]
     Route: 048
     Dates: start: 20110827, end: 20111012
  15. SERTRALINE HYDROCHLORIDE [Suspect]
     Route: 048
     Dates: start: 20110920, end: 20120101
  16. QUETIAPINE [Suspect]
     Indication: PRODUCT USED FOR UNKNOWN INDICATION
     Route: 048
     Dates: start: 20110822, end: 20110825
  17. QUETIAPINE [Suspect]
     Route: 048
     Dates: start: 20110912
  18. ALENDRONATE SODIUM [Concomitant]
     Indication: PRODUCT USED FOR UNKNOWN INDICATION
     Dosage: SCHON LANGER
     Route: 048
  19. SERTRALINE HYDROCHLORIDE [Suspect]
     Indication: PRODUCT USED FOR UNKNOWN INDICATION
     Route: 048
     Dates: start: 20110915, end: 20110919
  20. LITHIUM CARBONATE [Suspect]
     Route: 048
     Dates: start: 20110914, end: 20110921
  21. DOMINAL [Suspect]
     Indication: PRODUCT USED FOR UNKNOWN INDICATION
     Route: 048
     Dates: start: 20110722, end: 20110825
  22. QUETIAPINE [Suspect]
     Route: 048
     Dates: start: 20110830, end: 20110901
  23. AGOMELATIN [Suspect]
     Route: 048
     Dates: start: 20110818, end: 20110914
  24. QUETIAPINE [Suspect]
     Route: 048
     Dates: start: 20110902, end: 20110905
  25. LITHIUM CARBONATE [Suspect]
     Route: 048
     Dates: start: 20110726, end: 20110811

REACTIONS (3)
  - DYSPHAGIA [None]
  - SALIVARY HYPERSECRETION [None]
  - ABASIA [None]
